FAERS Safety Report 22136062 (Version 1)
Quarter: 2023Q1

REPORT INFORMATION
  Report Type: Spontaneous
  Country: FR (occurrence: FR)
  Receive Date: 20230324
  Receipt Date: 20230324
  Transmission Date: 20230418
  Serious: Yes (Other)
  Sender: FDA-Public Use
  Company Number: None

PATIENT
  Age: 80 Year
  Sex: Male
  Weight: 70 kg

DRUGS (2)
  1. CIPROFLOXACIN [Suspect]
     Active Substance: CIPROFLOXACIN
     Indication: Lung disorder
     Dosage: 1 GRAM DAILY; 500MG TWICE A DAY
     Route: 065
     Dates: start: 20230107, end: 20230107
  2. AUGMENTIN [Concomitant]
     Active Substance: AMOXICILLIN\CLAVULANATE POTASSIUM
     Indication: Lung disorder
     Dosage: 6 GRAM DAILY; 2G 3X/D
     Route: 065
     Dates: start: 20230107, end: 20230111

REACTIONS (2)
  - Hepatic cytolysis [Recovering/Resolving]
  - Bilirubin conjugated increased [Recovering/Resolving]

NARRATIVE: CASE EVENT DATE: 20230108
